FAERS Safety Report 5477696-9 (Version None)
Quarter: 2007Q4

REPORT INFORMATION
  Report Type: 
  Country: None (occurrence: None)
  Receive Date: 20071003
  Receipt Date: 20071003
  Transmission Date: 20080405
  Serious: Yes (Hospitalization)
  Sender: FDA-Public Use
  Company Number: None

PATIENT
  Sex: Male

DRUGS (2)
  1. LENALIDOMIDE    25MGS   CELGENE [Suspect]
     Dosage: 25 MGS  QD  PO
     Route: 048
     Dates: start: 20070921, end: 20070928
  2. DOCETAXEL [Suspect]
     Dosage: 75 MG/M2   Q THREE WEEKS   IV DRIP
     Route: 041
     Dates: start: 20070921, end: 20070928

REACTIONS (2)
  - DRUG HYPERSENSITIVITY [None]
  - SWELLING [None]
